FAERS Safety Report 18587020 (Version 1)
Quarter: 2020Q4

REPORT INFORMATION
  Report Type: Spontaneous
  Country: US (occurrence: US)
  Receive Date: 20201207
  Receipt Date: 20201207
  Transmission Date: 20210114
  Serious: No
  Sender: FDA-Public Use
  Company Number: US-ROCHE-2535715

PATIENT
  Sex: Female
  Weight: 91.25 kg

DRUGS (19)
  1. MIRALAX [Concomitant]
     Active Substance: POLYETHYLENE GLYCOL 3350
  2. CLARITIN [Concomitant]
     Active Substance: LORATADINE
  3. PROAIR HFA [Concomitant]
     Active Substance: ALBUTEROL SULFATE
  4. LYSINE [Concomitant]
     Active Substance: LYSINE
  5. OMEPRAZOLE. [Concomitant]
     Active Substance: OMEPRAZOLE
  6. TRAMADOL. [Concomitant]
     Active Substance: TRAMADOL
  7. METFORMIN [Concomitant]
     Active Substance: METFORMIN HYDROCHLORIDE
  8. VALIUM [Suspect]
     Active Substance: DIAZEPAM
     Indication: PRODUCT USED FOR UNKNOWN INDICATION
     Route: 065
  9. MELATONIN [Concomitant]
     Active Substance: MELATONIN
  10. GARLIC. [Concomitant]
     Active Substance: GARLIC
  11. IBRANCE [Suspect]
     Active Substance: PALBOCICLIB
     Indication: BREAST CANCER
     Dosage: DAILY FOR 21 OF 28 DAYS
     Route: 048
     Dates: start: 20200106
  12. SENNA [Concomitant]
     Active Substance: SENNA LEAF\SENNOSIDES\SENNOSIDES A AND B
  13. LEVOTHYROXINE. [Concomitant]
     Active Substance: LEVOTHYROXINE
  14. MAGNESIUM [Concomitant]
     Active Substance: MAGNESIUM
  15. ANASTROZOLE. [Concomitant]
     Active Substance: ANASTROZOLE
  16. VOLTAREN [Concomitant]
     Active Substance: DICLOFENAC SODIUM
  17. CALCIUM [Concomitant]
     Active Substance: CALCIUM
  18. METHOTREXATE. [Concomitant]
     Active Substance: METHOTREXATE
  19. PRAVASTATIN. [Concomitant]
     Active Substance: PRAVASTATIN

REACTIONS (2)
  - Constipation [Unknown]
  - Blood count abnormal [Unknown]
